FAERS Safety Report 7906945-X (Version None)
Quarter: 2011Q4

REPORT INFORMATION
  Report Type: 
  Country: None (occurrence: None)
  Receive Date: 20111109
  Receipt Date: 20111109
  Transmission Date: 20120403
  Serious: Yes (Other)
  Sender: FDA-Public Use
  Company Number: None

PATIENT
  Age: 72 Year
  Sex: Female
  Weight: 49.8957 kg

DRUGS (1)
  1. FEMARA [Suspect]
     Dosage: 2.5 MG ONE PER DAY
     Dates: start: 20110401, end: 20110501

REACTIONS (3)
  - GAIT DISTURBANCE [None]
  - PARKINSON'S DISEASE [None]
  - FATIGUE [None]
